FAERS Safety Report 7843768-4 (Version None)
Quarter: 2011Q4

REPORT INFORMATION
  Report Type: 
  Country: None (occurrence: None)
  Receive Date: 20111025
  Receipt Date: 20111020
  Transmission Date: 20120403
  Serious: Yes (Life-Threatening, Hospitalization)
  Sender: FDA-Public Use
  Company Number: AU-ROCHE-1006119

PATIENT
  Sex: Female
  Weight: 74 kg

DRUGS (14)
  1. DOXORUBICIN/DOXORUBICIN HYDROCHLORIDE [Suspect]
     Indication: RHEUMATOID ARTHRITIS
     Dosage: FREQUENCY: FORTNIGHTLY
     Route: 042
     Dates: start: 20110927, end: 20111013
  2. FELODIPINE [Concomitant]
  3. PAMIDRONATE DISODIUM [Suspect]
     Indication: PRODUCT USED FOR UNKNOWN INDICATION
  4. PANTOPRAZOLE [Concomitant]
  5. CALCITRIOL [Concomitant]
  6. CALCIUM CARBONATE [Concomitant]
  7. ASPIRIN [Concomitant]
  8. CYCLOPHOSPHAMIDE [Suspect]
     Indication: RHEUMATOID ARTHRITIS
     Dosage: FREQUENCY: FORTNIGHTLY
     Route: 042
     Dates: start: 20110927, end: 20111013
  9. PREDNISONE [Suspect]
     Indication: RHEUMATOID ARTHRITIS
     Dosage: FOR 5 DAYS EVERY FORTNIGHT
     Route: 048
     Dates: start: 20110927, end: 20111017
  10. CITALOPRAM HYDROBROMIDE [Concomitant]
  11. MABTHERA [Suspect]
     Indication: RHEUMATOID ARTHRITIS
     Dosage: FREQUENCY: FORTNIGHTLY
     Route: 042
     Dates: start: 20110927, end: 20111013
  12. VINCRISTINE [Suspect]
     Indication: RHEUMATOID ARTHRITIS
     Dosage: FREQUENCY: FORTNIGHTLY
     Route: 042
     Dates: start: 20110927, end: 20111013
  13. PERINDOPRIL ERBUMINE [Concomitant]
  14. BACTRIM DS [Concomitant]

REACTIONS (1)
  - TUMOUR LYSIS SYNDROME [None]
